FAERS Safety Report 6210038-X (Version None)
Quarter: 2009Q2

REPORT INFORMATION
  Report Type: 
  Country: None (occurrence: None)
  Receive Date: 20090601
  Receipt Date: 20090521
  Transmission Date: 20091009
  Serious: Yes (Other)
  Sender: FDA-Public Use
  Company Number: PHHY2009MX19843

PATIENT
  Age: 66 Year
  Sex: Female

DRUGS (1)
  1. DIOVAN HCT [Suspect]
     Indication: HYPERTENSION
     Dosage: 0.5 DF, QD
     Route: 048
     Dates: start: 20050601

REACTIONS (3)
  - ARTHRALGIA [None]
  - JOINT WARMTH [None]
  - ROAD TRAFFIC ACCIDENT [None]
